FAERS Safety Report 22153567 (Version 1)
Quarter: 2023Q1

REPORT INFORMATION
  Report Type: Report from Study
  Country: CN (occurrence: CN)
  Receive Date: 20230330
  Receipt Date: 20230330
  Transmission Date: 20230417
  Serious: Yes (Other)
  Sender: FDA-Public Use
  Company Number: CN-TAKEDA-2023TUS032292

PATIENT
  Age: 3 Year
  Sex: Male
  Weight: 19 kg

DRUGS (3)
  1. ADVATE [Suspect]
     Active Substance: ANTIHEMOPHILIC FACTOR, HUMAN RECOMBINANT
     Indication: Factor VIII deficiency
     Dosage: 1 DOSAGE FORM, QOD
     Route: 040
     Dates: start: 20220501
  2. ADVATE [Suspect]
     Active Substance: ANTIHEMOPHILIC FACTOR, HUMAN RECOMBINANT
     Indication: Factor VIII deficiency
     Dosage: 1 DOSAGE FORM, QOD
     Route: 040
     Dates: start: 20220501
  3. ADVATE [Suspect]
     Active Substance: ANTIHEMOPHILIC FACTOR, HUMAN RECOMBINANT
     Indication: Factor VIII deficiency
     Dosage: 1 DOSAGE FORM, QOD
     Route: 040
     Dates: start: 20220501

REACTIONS (3)
  - Haemarthrosis [Recovering/Resolving]
  - Joint swelling [Recovering/Resolving]
  - Arthralgia [Recovering/Resolving]

NARRATIVE: CASE EVENT DATE: 20230325
